FAERS Safety Report 17376334 (Version 1)
Quarter: 2020Q1

REPORT INFORMATION
  Report Type: Spontaneous
  Country: US (occurrence: US)
  Receive Date: 20200205
  Receipt Date: 20200205
  Transmission Date: 20200409
  Serious: Yes (Death)
  Sender: FDA-Public Use
  Company Number: None

PATIENT
  Age: 67 Year
  Sex: Female
  Weight: 76.95 kg

DRUGS (4)
  1. PANTOPRAZOLE 40MG [Concomitant]
     Active Substance: PANTOPRAZOLE SODIUM
  2. VERZENIO [Suspect]
     Active Substance: ABEMACICLIB
     Route: 048
     Dates: start: 20200108, end: 20200205
  3. DEXAMETHASONE 4MG [Concomitant]
     Active Substance: DEXAMETHASONE
  4. CALCIUM D [Concomitant]
     Active Substance: CALCIUM\VITAMIN D

REACTIONS (1)
  - Death [None]

NARRATIVE: CASE EVENT DATE: 20200205
